FAERS Safety Report 8965038 (Version 2)
Quarter: 2013Q1

REPORT INFORMATION
  Report Type: Spontaneous
  Country: GB (occurrence: GB)
  Receive Date: 20121213
  Receipt Date: 20130213
  Transmission Date: 20140127
  Serious: Yes (Hospitalization)
  Sender: FDA-Public Use
  Company Number: GB-JNJFOC-20121205086

PATIENT
  Age: 73 Year
  Sex: Female
  Weight: 70 kg

DRUGS (4)
  1. XARELTO [Suspect]
     Indication: THROMBOSIS PROPHYLAXIS
     Route: 048
     Dates: start: 20121009, end: 20121013
  2. XARELTO [Suspect]
     Indication: POSTOPERATIVE CARE
     Route: 048
     Dates: start: 20121009, end: 20121013
  3. VALSARTAN [Concomitant]
     Route: 065
  4. METFORMIN [Concomitant]
     Route: 065

REACTIONS (5)
  - Deafness [Recovered/Resolved]
  - Hearing impaired [Recovered/Resolved]
  - Epistaxis [Recovered/Resolved]
  - Fatigue [Recovered/Resolved]
  - Dysphonia [Recovered/Resolved]
